FAERS Safety Report 8352884-2 (Version None)
Quarter: 2012Q2

REPORT INFORMATION
  Report Type: 
  Country: None (occurrence: None)
  Receive Date: 20120511
  Receipt Date: 20120502
  Transmission Date: 20120825
  Serious: Yes (Other)
  Sender: FDA-Public Use
  Company Number: MX-SANOFI-AVENTIS-2012SA031241

PATIENT
  Age: 45 Year
  Sex: Male
  Weight: 62 kg

DRUGS (3)
  1. AMARYL [Suspect]
     Route: 048
     Dates: start: 20071120
  2. ORAL ANTIDIABETICS [Concomitant]
     Dates: end: 20071120
  3. LANTUS [Suspect]
     Route: 058
     Dates: start: 20071120

REACTIONS (4)
  - METASTASES TO PELVIS [None]
  - PROSTATE CANCER [None]
  - HYPERGLYCAEMIA [None]
  - GENITAL PAIN [None]
